FAERS Safety Report 12729776 (Version 3)
Quarter: 2017Q1

REPORT INFORMATION
  Report Type: Spontaneous
  Country: US (occurrence: US)
  Receive Date: 20160909
  Receipt Date: 20170103
  Transmission Date: 20170428
  Serious: Yes (Hospitalization, Other)
  Sender: FDA-Public Use
  Company Number: US-RELYPSA-RLY2016002262

PATIENT
  Sex: Female

DRUGS (29)
  1. COREG [Concomitant]
     Active Substance: CARVEDILOL
  2. HYDROCHLOROTHIAZIDE. [Concomitant]
     Active Substance: HYDROCHLOROTHIAZIDE
  3. LASIX [Concomitant]
     Active Substance: FUROSEMIDE
  4. PEPCID                             /00305201/ [Concomitant]
     Active Substance: ALUMINUM HYDROXIDE\MAGNESIUM CARBONATE
  5. HUMALOG [Concomitant]
     Active Substance: INSULIN LISPRO
  6. NORVASC [Concomitant]
     Active Substance: AMLODIPINE BESYLATE
  7. HYDRALAZINE HCL [Concomitant]
     Active Substance: HYDRALAZINE HYDROCHLORIDE
  8. GABAPENTIN. [Concomitant]
     Active Substance: GABAPENTIN
  9. HYDROCODONE/ACETAMINOPHEN [Concomitant]
     Active Substance: ACETAMINOPHEN\HYDROCODONE
  10. ASPIRIN. [Concomitant]
     Active Substance: ASPIRIN
     Dosage: 81 MG, QD
  11. VALSARTAN. [Concomitant]
     Active Substance: VALSARTAN
  12. RENAVIT [Concomitant]
  13. CLONIDINE. [Concomitant]
     Active Substance: CLONIDINE
  14. VELTASSA [Suspect]
     Active Substance: PATIROMER
     Indication: HYPERKALAEMIA
     Dosage: 8.4 G, QD
     Route: 048
     Dates: start: 201604
  15. AMLODIPINE BESYLATE. [Concomitant]
     Active Substance: AMLODIPINE BESYLATE
  16. FAMOTIDINE. [Concomitant]
     Active Substance: FAMOTIDINE
  17. HYDROCODONE [Concomitant]
     Active Substance: HYDROCODONE
     Indication: PAIN
  18. PROBIOTICS                         /07325001/ [Concomitant]
     Active Substance: BIFIDOBACTERIUM LONGUM\LACTOBACILLUS ACIDOPHILUS\LACTOBACILLUS RHAMNOSUS
  19. CRESTOR [Concomitant]
     Active Substance: ROSUVASTATIN CALCIUM
  20. ZOFRAN [Concomitant]
     Active Substance: ONDANSETRON HYDROCHLORIDE
     Dosage: AS NEEDED
  21. ATORVASTATIN [Concomitant]
     Active Substance: ATORVASTATIN
  22. ALLOPURINOL. [Concomitant]
     Active Substance: ALLOPURINOL
  23. FISH OIL [Concomitant]
     Active Substance: FISH OIL
  24. FUROSEMIDE. [Concomitant]
     Active Substance: FUROSEMIDE
  25. SODIUM BICARBONATE. [Concomitant]
     Active Substance: SODIUM BICARBONATE
  26. ISOSORBIDE. [Concomitant]
     Active Substance: ISOSORBIDE
  27. PLAVIX [Concomitant]
     Active Substance: CLOPIDOGREL BISULFATE
  28. VICTOZA [Concomitant]
     Active Substance: LIRAGLUTIDE
  29. VITAMIN D3 [Concomitant]
     Active Substance: CHOLECALCIFEROL

REACTIONS (2)
  - Foot amputation [Unknown]
  - Postoperative wound infection [Recovered/Resolved]

NARRATIVE: CASE EVENT DATE: 2016
